FAERS Safety Report 4835643-4 (Version None)
Quarter: 2005Q4

REPORT INFORMATION
  Report Type: 
  Country: None (occurrence: None)
  Receive Date: 20051121
  Receipt Date: 20051107
  Transmission Date: 20060501
  Serious: Yes (Hospitalization, Other)
  Sender: FDA-Public Use
  Company Number: 2003012290

PATIENT
  Age: 62 Year
  Sex: Female
  Weight: 68.5 kg

DRUGS (5)
  1. ATORVASTATIN CALCIUM [Suspect]
     Indication: CEREBROVASCULAR DISORDER
     Dosage: 80 MG (40 MG, 2 IN 1 D), ORAL
     Route: 048
     Dates: start: 20001205
  2. CAPTOPRIL [Concomitant]
  3. NIFEDIPINE [Concomitant]
  4. ASPIRIN [Concomitant]
  5. RANITIDINE HYDROCHLORIDE [Concomitant]

REACTIONS (7)
  - ALANINE AMINOTRANSFERASE INCREASED [None]
  - ANAEMIA [None]
  - CHOLECYSTITIS ACUTE [None]
  - HYPOVOLAEMIA [None]
  - MENTAL DISORDER [None]
  - PROCEDURAL COMPLICATION [None]
  - SPEECH DISORDER [None]
